FAERS Safety Report 7903147-8 (Version None)
Quarter: 2011Q4

REPORT INFORMATION
  Report Type: 
  Country: None (occurrence: None)
  Receive Date: 20111108
  Receipt Date: 20111108
  Transmission Date: 20120403
  Serious: No
  Sender: FDA-Public Use
  Company Number: None

PATIENT
  Sex: Male
  Weight: 70.7 kg

DRUGS (11)
  1. AREPITANT [Concomitant]
  2. LORAZEPAM [Concomitant]
  3. DEXAMETHASONE [Concomitant]
  4. CISPLATIN [Suspect]
     Dosage: 58 MG
  5. CHLORPHENIRAMINE-PSE-IBUPROFEN [Concomitant]
  6. ACETAMINOPHEN [Concomitant]
  7. LOPERAMIDE HCL [Concomitant]
  8. PROCHLORPERAZINE [Concomitant]
  9. ASPIRIN [Concomitant]
  10. OMEPRAZOLE [Concomitant]
  11. PROMETHAZINE [Concomitant]

REACTIONS (4)
  - LEUKOPENIA [None]
  - NEUTROPENIA [None]
  - LYMPHOPENIA [None]
  - ANAEMIA [None]
